FAERS Safety Report 7518238-3 (Version None)
Quarter: 2011Q2

REPORT INFORMATION
  Report Type: 
  Country: None (occurrence: None)
  Receive Date: 20110602
  Receipt Date: 20060524
  Transmission Date: 20111010
  Serious: Yes (Life-Threatening, Hospitalization)
  Sender: FDA-Public Use
  Company Number: PHHO2006IT03297

PATIENT
  Sex: Male
  Weight: 61 kg

DRUGS (1)
  1. GLEEVEC [Suspect]
     Indication: GASTROINTESTINAL STROMAL TUMOUR
     Dosage: 400 MG, QD
     Route: 048
     Dates: start: 20060215, end: 20060221

REACTIONS (5)
  - VOMITING [None]
  - CHEST PAIN [None]
  - MYOCARDIAL ISCHAEMIA [None]
  - NAUSEA [None]
  - PYREXIA [None]
